FAERS Safety Report 7953879-0 (Version None)
Quarter: 2011Q4

REPORT INFORMATION
  Report Type: 
  Country: None (occurrence: None)
  Receive Date: 20111129
  Receipt Date: 20111117
  Transmission Date: 20120403
  Serious: Yes (Death, Hospitalization, Other)
  Sender: FDA-Public Use
  Company Number: UTC-012566

PATIENT
  Age: 64 Year
  Sex: Female
  Weight: 72.7 kg

DRUGS (3)
  1. TRACLEER [Concomitant]
  2. COUMADIN [Concomitant]
  3. REMODULIN [Suspect]
     Indication: PULMONARY ARTERIAL HYPERTENSION
     Dosage: 155.52 UG/KG (0.108 UG/KG, 1 IN 1 MIN) INTRAVENOUS
     Route: 042
     Dates: start: 20080808, end: 20111114

REACTIONS (6)
  - SEPTIC SHOCK [None]
  - HUMERUS FRACTURE [None]
  - FALL [None]
  - PANCYTOPENIA [None]
  - DRUG INTERACTION [None]
  - FEMUR FRACTURE [None]
